FAERS Safety Report 21633791 (Version 2)
Quarter: 2023Q1

REPORT INFORMATION
  Report Type: Spontaneous
  Country: US (occurrence: US)
  Receive Date: 20221123
  Receipt Date: 20230324
  Transmission Date: 20230418
  Serious: No
  Sender: FDA-Public Use
  Company Number: US-XERIS PHARMACEUTICALS-2022XER00383

PATIENT
  Age: 61 Year
  Sex: Male
  Weight: 87.982 kg

DRUGS (5)
  1. GVOKE [Suspect]
     Active Substance: GLUCAGON
     Indication: Hypoglycaemia
     Dosage: 1 MG ATTEMPTED TO INJECT IN STOMACH, AS NEEDED
     Route: 058
  2. GVOKE [Suspect]
     Active Substance: GLUCAGON
     Dosage: 1 MG, AS NEEDED
     Route: 058
  3. GLUCAGON EMERGENCY KIT FOR LOW BLOOD SUGAR [Concomitant]
  4. PREDNISONE [Concomitant]
     Active Substance: PREDNISONE
     Dosage: 10 MG, 1X/DAY
  5. PROGRAF [Concomitant]
     Active Substance: TACROLIMUS
     Dosage: 0.5 MG, 2X/DAY

REACTIONS (4)
  - Device mechanical issue [Recovered/Resolved]
  - Injection site erythema [Unknown]
  - Injection site papule [Unknown]
  - Injection site pain [Recovered/Resolved]

NARRATIVE: CASE EVENT DATE: 20221028
